FAERS Safety Report 5192320-0 (Version None)
Quarter: 2006Q4

REPORT INFORMATION
  Report Type: 
  Country: None (occurrence: None)
  Receive Date: 20061227
  Receipt Date: 20060919
  Transmission Date: 20070319
  Serious: Yes (Other)
  Sender: FDA-Public Use
  Company Number: JP-PFIZER INC-2006113299

PATIENT
  Sex: Male

DRUGS (2)
  1. UNASYN [Suspect]
     Indication: BRONCHITIS ACUTE
     Route: 042
     Dates: start: 20060711, end: 20060711
  2. METILON [Concomitant]
     Route: 042
     Dates: start: 20060726, end: 20060726

REACTIONS (3)
  - ERYTHEMA [None]
  - NAUSEA [None]
  - SHOCK [None]
